FAERS Safety Report 8434200-0 (Version None)
Quarter: 2012Q2

REPORT INFORMATION
  Report Type: 
  Country: None (occurrence: None)
  Receive Date: 20120613
  Receipt Date: 20120601
  Transmission Date: 20120825
  Serious: No
  Sender: FDA-Public Use
  Company Number: US-ASTRAZENECA-2012SE37002

PATIENT
  Age: 48 Year
  Sex: Female
  Weight: 86.2 kg

DRUGS (5)
  1. ZOLOFT [Concomitant]
  2. BIRTH CONTROL [Concomitant]
  3. ALBUTEROL [Concomitant]
  4. PULMICORT FLEXHALER [Suspect]
     Dosage: 180MCG ONE PUFF BID
     Route: 055
     Dates: start: 20110101
  5. SINGULAIR [Concomitant]

REACTIONS (3)
  - DYSPHONIA [None]
  - OFF LABEL USE [None]
  - SEASONAL ALLERGY [None]
